FAERS Safety Report 6062989-7 (Version None)
Quarter: 2009Q1

REPORT INFORMATION
  Report Type: 
  Country: None (occurrence: None)
  Receive Date: 20090203
  Receipt Date: 20090128
  Transmission Date: 20090719
  Serious: Yes (Life-Threatening, Hospitalization)
  Sender: FDA-Public Use
  Company Number: B0556355A

PATIENT
  Age: 55 Year
  Sex: Male

DRUGS (10)
  1. CLAMOXYL [Suspect]
     Indication: SELF-MEDICATION
     Route: 048
     Dates: start: 20080229
  2. DEXTROMETHORPHANE [Concomitant]
     Indication: SELF-MEDICATION
     Route: 048
     Dates: start: 20080229
  3. PLAVIX [Concomitant]
     Route: 065
  4. KARDEGIC [Concomitant]
     Route: 065
  5. INIPOMP [Concomitant]
     Route: 065
  6. ELISOR [Concomitant]
     Route: 065
  7. SELOKEN [Concomitant]
     Route: 065
  8. FONZYLANE [Concomitant]
     Route: 065
  9. NITROGLYCERIN [Concomitant]
     Route: 065
  10. INDAPAMIDE [Concomitant]
     Route: 065

REACTIONS (9)
  - ANAPHYLACTOID REACTION [None]
  - ANGIOEDEMA [None]
  - BRONCHOSPASM [None]
  - ELECTROCARDIOGRAM REPOLARISATION ABNORMALITY [None]
  - HYPOTENSION [None]
  - LOSS OF CONSCIOUSNESS [None]
  - PRURIGO [None]
  - SILENT MYOCARDIAL INFARCTION [None]
  - TROPONIN INCREASED [None]
